FAERS Safety Report 7684372-0 (Version None)
Quarter: 2011Q3

REPORT INFORMATION
  Report Type: 
  Country: None (occurrence: None)
  Receive Date: 20110816
  Receipt Date: 20110808
  Transmission Date: 20111222
  Serious: Yes (Hospitalization)
  Sender: FDA-Public Use
  Company Number: US-BIOGENIDEC-2011BI027217

PATIENT
  Age: 59 Year
  Sex: Female

DRUGS (16)
  1. DIVALPROEX SODIUM [Concomitant]
     Indication: MIGRAINE
     Route: 048
  2. LORTAB [Concomitant]
     Indication: PAIN
     Route: 048
  3. METHYLPHENIDATE [Concomitant]
     Route: 048
     Dates: start: 20110713
  4. GABAPENTIN [Concomitant]
     Route: 048
  5. AMITRIPTYLINE HCL [Concomitant]
     Route: 048
  6. METHYLPHENIDATE [Concomitant]
     Route: 048
  7. VITAMIN D [Concomitant]
     Route: 048
  8. DEPAKOTE ER [Concomitant]
     Route: 048
  9. OXYBUTYNIN [Concomitant]
     Indication: URINARY INCONTINENCE
     Route: 048
  10. ACYCLOVIR [Concomitant]
     Indication: ORAL INFECTION
     Route: 048
  11. IBUPROFEN [Concomitant]
     Indication: PAIN
     Route: 048
  12. MECLIZINE [Concomitant]
     Indication: DIZZINESS
     Route: 048
  13. TYSABRI [Suspect]
     Indication: MULTIPLE SCLEROSIS
     Route: 042
     Dates: start: 20080612, end: 20110609
  14. ACYCLOVIR TOPICAL [Concomitant]
     Indication: ORAL INFECTION
  15. ARICEPT [Concomitant]
     Indication: MEMORY IMPAIRMENT
     Route: 048
  16. NYSTATIN [Concomitant]
     Route: 048

REACTIONS (2)
  - CELLULITIS [None]
  - URINARY TRACT INFECTION [None]
